FAERS Safety Report 4915210-4 (Version None)
Quarter: 2006Q1

REPORT INFORMATION
  Report Type: 
  Country: None (occurrence: None)
  Receive Date: 20060215
  Receipt Date: 20060215
  Transmission Date: 20060701
  Serious: Yes (Hospitalization, Other)
  Sender: FDA-Public Use
  Company Number: None

PATIENT
  Sex: Female
  Weight: 91.7 kg

DRUGS (2)
  1. CYTARABINE [Suspect]
     Indication: ACUTE MYELOID LEUKAEMIA
     Dosage: 1470 MG
     Dates: start: 20050928, end: 20051004
  2. DAUNORUBICIN [Suspect]
     Dosage: 285 MG
     Dates: start: 20050928, end: 20050930

REACTIONS (2)
  - ASTHENIA [None]
  - PERICARDITIS [None]
